FAERS Safety Report 7384264-0 (Version None)
Quarter: 2011Q1

REPORT INFORMATION
  Report Type: 
  Country: None (occurrence: None)
  Receive Date: 20110322
  Receipt Date: 20110308
  Transmission Date: 20110831
  Serious: Yes (Death)
  Sender: FDA-Public Use
  Company Number: JPI-P-014131

PATIENT
  Age: 35 Year
  Sex: Female

DRUGS (2)
  1. XYREM [Suspect]
     Indication: NARCOLEPSY
     Dosage: 4.5, GM (2.5 GM 2 IN 1 D), 9 GM (4.5 GM, 2 IN 1  D) ORAL
     Route: 048
     Dates: start: 20061110
  2. XYREM [Suspect]
     Indication: NARCOLEPSY
     Dosage: 4.5, GM (2.5 GM 2 IN 1 D), 9 GM (4.5 GM, 2 IN 1  D) ORAL
     Route: 048
     Dates: start: 20070412, end: 20110216

REACTIONS (2)
  - SOMNOLENCE [None]
  - INITIAL INSOMNIA [None]
